FAERS Safety Report 8562458-6 (Version None)
Quarter: 2012Q3

REPORT INFORMATION
  Report Type: 
  Country: None (occurrence: None)
  Receive Date: 20120802
  Receipt Date: 20120712
  Transmission Date: 20120928
  Serious: No
  Sender: FDA-Public Use
  Company Number: US-AMGEN-USASP2011016112

PATIENT
  Age: 39 Year
  Sex: Male
  Weight: 146 kg

DRUGS (3)
  1. ENBREL [Suspect]
     Indication: RHEUMATOID ARTHRITIS
     Dosage: 50 MG, QWK
     Route: 058
     Dates: start: 20111112
  2. METHOTREXATE [Concomitant]
     Indication: RHEUMATOID ARTHRITIS
     Dosage: UNK
     Route: 048
     Dates: start: 20090101, end: 20100101
  3. ARAVA [Concomitant]
     Dosage: UNK

REACTIONS (6)
  - NASOPHARYNGITIS [None]
  - FUNGAL INFECTION [None]
  - UPPER RESPIRATORY TRACT INFECTION [None]
  - CHEST PAIN [None]
  - SKIN LESION [None]
  - LOWER RESPIRATORY TRACT INFECTION [None]
